FAERS Safety Report 9689752 (Version 1)
Quarter: 2013Q4

REPORT INFORMATION
  Report Type: Spontaneous
  Country: BR (occurrence: BR)
  Receive Date: 20131115
  Receipt Date: 20131115
  Transmission Date: 20140711
  Serious: Yes (Other)
  Sender: FDA-Public Use
  Company Number: BR-JNJFOC-20131105416

PATIENT
  Sex: Male
  Weight: 81 kg

DRUGS (2)
  1. REMICADE [Suspect]
     Indication: ANKYLOSING SPONDYLITIS
     Route: 042
     Dates: start: 2010
  2. REMICADE [Suspect]
     Indication: ANKYLOSING SPONDYLITIS
     Route: 042
     Dates: start: 201307, end: 201307

REACTIONS (4)
  - Hyperglycaemia [Recovered/Resolved]
  - Hepatic enzyme abnormal [Recovered/Resolved]
  - Prostatomegaly [Not Recovered/Not Resolved]
  - Weight increased [Recovering/Resolving]
